FAERS Safety Report 4750372-3 (Version None)
Quarter: 2005Q3

REPORT INFORMATION
  Report Type: 
  Country: None (occurrence: None)
  Receive Date: 20050818
  Receipt Date: 20050729
  Transmission Date: 20060218
  Serious: Yes (Hospitalization)
  Sender: FDA-Public Use
  Company Number: PAR_0163_2005

PATIENT
  Age: 32 Year
  Sex: Female

DRUGS (1)
  1. IBUPROFEN [Suspect]
     Indication: HEADACHE
     Dosage: PO
     Route: 048

REACTIONS (4)
  - HYPERAMYLASAEMIA [None]
  - PAROTID DUCT CYST [None]
  - SALIVARY DUCT OBSTRUCTION [None]
  - TOXIC EPIDERMAL NECROLYSIS [None]
